FAERS Safety Report 15481559 (Version 1)
Quarter: 2018Q4

REPORT INFORMATION
  Report Type: Spontaneous
  Country: US (occurrence: US)
  Receive Date: 20181010
  Receipt Date: 20181010
  Transmission Date: 20190205
  Serious: No
  Sender: FDA-Public Use
  Company Number: US-ACCORD-067966

PATIENT
  Age: 55 Year
  Sex: Male

DRUGS (1)
  1. GLIMEPIRIDE ACCORD [Suspect]
     Active Substance: GLIMEPIRIDE
     Indication: TYPE 2 DIABETES MELLITUS
     Dosage: STRENGTH: 2 MG
     Route: 048

REACTIONS (2)
  - Product substitution issue [Unknown]
  - Blood glucose increased [Recovered/Resolved]
